APPROVED DRUG PRODUCT: RIVAROXABAN
Active Ingredient: RIVAROXABAN
Strength: 15MG
Dosage Form/Route: TABLET;ORAL
Application: A208555 | Product #003 | TE Code: AB
Applicant: LUPIN LTD
Approved: May 14, 2025 | RLD: No | RS: No | Type: RX